FAERS Safety Report 24879864 (Version 6)
Quarter: 2025Q4

REPORT INFORMATION
  Report Type: Report from Study
  Country: US (occurrence: None)
  Receive Date: 20250123
  Receipt Date: 20251222
  Transmission Date: 20260118
  Serious: Yes (Other)
  Sender: UCB
  Company Number: US-UCBSA-2025002976

PATIENT
  Age: 19 Year
  Weight: 43.6 kg

DRUGS (40)
  1. FENFLURAMINE [Suspect]
     Active Substance: FENFLURAMINE
     Indication: Severe myoclonic epilepsy of infancy
     Dosage: UNK
     Route: 061
  2. FENFLURAMINE [Suspect]
     Active Substance: FENFLURAMINE
     Dosage: 5.9 MILLILITER, 2X/DAY (BID)
     Route: 061
  3. FENFLURAMINE [Suspect]
     Active Substance: FENFLURAMINE
     Dosage: 5 MILLILITER, 2X/DAY (BID)
     Route: 061
  4. FENFLURAMINE [Suspect]
     Active Substance: FENFLURAMINE
     Dosage: 0.6 MILLIGRAM/KILOGRAM/DAY
     Route: 061
  5. FENFLURAMINE [Suspect]
     Active Substance: FENFLURAMINE
     Dosage: 0.4 MILLIGRAM/KILOGRAM/DAY (17.6 MILLIGRAM PER DAY)
     Route: 061
  6. FENFLURAMINE [Suspect]
     Active Substance: FENFLURAMINE
     Dosage: 5.9 MILLILITER, 2X/DAY (BID)
     Route: 061
  7. CLONAZEPAM [Concomitant]
     Active Substance: CLONAZEPAM
     Indication: Product used for unknown indication
     Dosage: 2 MG DISSOLVE 1 TABLET IN MOUTH 3 TIMES DAILY (0.1 MG/KG)
     Route: 061
  8. CLONAZEPAM [Concomitant]
     Active Substance: CLONAZEPAM
     Dosage: 1 MG GIVE 2 TABLETS BY MOUTH 3 TIMES A DAY
     Route: 061
  9. CLONAZEPAM [Concomitant]
     Active Substance: CLONAZEPAM
     Dosage: 0.5 MG WEEK 1 - GIVE 1 TAB IN AM AND AFTERNOON (WITH 1 MG TAB) WEEK 2- GIVE 1 TAB IN AFTERNOON ONLY THEN DISCONTINUE
     Route: 061
  10. TOPIRAMATE [Concomitant]
     Active Substance: TOPIRAMATE
     Indication: Product used for unknown indication
     Dosage: TAKE 2 +1/2 TABS BY MOUTH 2 TIMES DAILY
     Route: 061
  11. CHOLECALCIFEROL [Concomitant]
     Active Substance: CHOLECALCIFEROL
     Indication: Product used for unknown indication
     Dosage: TAKE ONE TABLET(S) (2,000 UNITS TOTAL) BY MOUTH ONCE A DAY
     Route: 061
  12. CLORAZEPATE DIPOTASSIUM [Concomitant]
     Active Substance: CLORAZEPATE DIPOTASSIUM
     Indication: Product used for unknown indication
     Dosage: TAKE ONE TABLET(S) (7.5 MG TOTAL) BY MOUTH 2 TIMES DAILY AS NEEDED (PERIODS OF ILLNESS X 5-7 DAYS)
     Route: 061
  13. NAYZILAM [Concomitant]
     Active Substance: MIDAZOLAM
     Indication: Seizure
     Dosage: SPRAY 5 MG IN NOSE ONCE AS NEEDED
  14. PYRIDOXINE [Concomitant]
     Active Substance: PYRIDOXINE
     Indication: Product used for unknown indication
     Dosage: TAKE TWO TABLETS BY MOUTH EVERY DAY
     Route: 061
  15. OXYGEN [Concomitant]
     Active Substance: OXYGEN
     Indication: Product used for unknown indication
     Dosage: OXYGEN: FLOW 1 O LITERS PER MINUTE, PRN, VIA FACE MASK. . MAINTAIN SPO2 ABOVE 90% DURING TONIC CLONIC SEIZURES
  16. DIASTAT ACUDIAL [Concomitant]
     Active Substance: DIAZEPAM
     Indication: Seizure
     Dosage: 10 MG RECTAL GEL ADMINISTER 10MG PR PRN FOR SEIZURE LASTING} 3 MINUTES OR CLUSTER SEIZURES
  17. OMEPRAZOLE [Concomitant]
     Active Substance: OMEPRAZOLE
     Indication: Product used for unknown indication
     Dosage: TAKE 20 MG BY MOUTH ONCE A DAY. TAKE 1 TABLET IN THE MORNING DAILY
     Route: 061
  18. TRAZODONE [Concomitant]
     Active Substance: TRAZODONE HYDROCHLORIDE
     Indication: Somnolence
     Dosage: 50 MG TAKE BY MOUTH ONCE A DAY. TAKE 1 /2 TABLET IN THE EVENING
     Route: 061
  19. TRAZODONE [Concomitant]
     Active Substance: TRAZODONE HYDROCHLORIDE
     Dosage: 25MG QHS
  20. QUETIAPINE [Concomitant]
     Active Substance: QUETIAPINE
     Indication: Product used for unknown indication
     Dosage: 25 MG TAKE 50 MG BY MOUTH ONCE A DAY, TAKE 50MG IN THE EVENING
     Route: 061
  21. MELATONIN [Concomitant]
     Active Substance: MELATONIN
     Indication: Product used for unknown indication
     Dosage: TAKE 5 MG BY MOUTH, TAKE 1 TABLET IN THE EVENING
     Route: 061
  22. MIRALAX [Concomitant]
     Active Substance: POLYETHYLENE GLYCOL 3350
     Indication: Product used for unknown indication
     Dosage: TAKE 2 CAPFULS BY MOUTH ONCE A DAY AS NEEDED
  23. TOPAMAX [Concomitant]
     Active Substance: TOPIRAMATE
     Indication: Product used for unknown indication
     Dosage: 250 MILLIGRAM, 2X/DAY (BID) (10.8 MG/KG)
  24. DIASTAT [Concomitant]
     Active Substance: DIAZEPAM
     Indication: Product used for unknown indication
     Dosage: 12.5MG
  25. KLONOPIN [Concomitant]
     Active Substance: CLONAZEPAM
     Indication: Product used for unknown indication
     Dosage: UNK
  26. ATIVAN [Concomitant]
     Active Substance: LORAZEPAM
     Indication: Product used for unknown indication
     Dosage: UNK
  27. PYRIDOXINE [Concomitant]
     Active Substance: PYRIDOXINE
     Indication: Product used for unknown indication
     Dosage: 100MG DAILY
  28. SEROQUEL [Concomitant]
     Active Substance: QUETIAPINE FUMARATE
     Indication: Product used for unknown indication
     Dosage: 50MG QHS
  29. QUETIAPINE FUMARATE [Concomitant]
     Active Substance: QUETIAPINE FUMARATE
     Indication: Product used for unknown indication
     Dosage: TAKE 1.5 TABLETS BY MOUTH DAILY AND 1 TABLET AT BEDTIME.
     Route: 061
  30. HYDROXYZINE HYDROCHLORIDE [Concomitant]
     Active Substance: HYDROXYZINE HYDROCHLORIDE
     Indication: Product used for unknown indication
     Dosage: TAKE 1 TABLET BY MOUTH IN THE AM AND 1 IN THE PM. IF NEEDED CAN TAKE UP TO EVERY 6 HOURS AS NEEDED FOR ANXIETY. MAX DOSE OF 4 IN A 24 HR PERIOD
  31. PEG 3350 [Concomitant]
     Active Substance: POLYETHYLENE GLYCOL 3350
     Indication: Product used for unknown indication
     Dosage: MIX 1/2 CAPFUL AS DIRECTED AND TAKE BY MOUTH DAILY
  32. TRAZODONE HCL [Concomitant]
     Active Substance: TRAZODONE HYDROCHLORIDE
     Indication: Product used for unknown indication
     Dosage: 50 MG TAKE 1 TABLET BY MOUTH AT BEDTIME
  33. OMEPRAZOLE [Concomitant]
     Active Substance: OMEPRAZOLE
     Indication: Product used for unknown indication
     Dosage: TAKE 1 CAPSULE BY MOUTH EVERY MORNING
  34. SODIUM FLUORIDE [Concomitant]
     Active Substance: SODIUM FLUORIDE
     Dosage: USE A PEA SIZE  AMOUNT AS TOOTHPASTE TWICE DAILY. DO NOT RINSE
  35. ONFI [Concomitant]
     Active Substance: CLOBAZAM
     Indication: Product used for unknown indication
     Dosage: 20 MG TAKE BY MOUTH 2 TIMES A DAY
  36. ACETAMINOPHEN [Concomitant]
     Active Substance: ACETAMINOPHEN
     Indication: Pain
     Dosage: 325 MG TAKE 2 TABLETS BY MOUTH EVERY 6 HOURS AS NEEDED
  37. VALTOCO [Concomitant]
     Active Substance: DIAZEPAM
     Indication: Product used for unknown indication
     Dosage: 10 MG DOSE 10 MG/0.1 ML ADMINISTER INTO NOSTRIL
  38. NUTRISOURCE FIBER [Concomitant]
     Indication: Product used for unknown indication
     Dosage: MIX 2 SCOOPS TWO TIMES 410 G DAILY WITH FORMULA AND ADMINISTER THROUGH FEEDING TUBE VIA PUMP
  39. IBUPROFEN [Concomitant]
     Active Substance: IBUPROFEN
     Indication: Pyrexia
     Dosage: 200 MG TAKE 2 TABLETS BY MOUTH EVERY 6 HOURS  AS NEEDED
  40. CHLORHEXIDINE GLUCONATE [Concomitant]
     Active Substance: CHLORHEXIDINE GLUCONATE
     Dosage: SWISH AND SPIT WITH 1 TABLESPOONFUL 3 TIMES A WEEK AFTER BRUSHING

REACTIONS (4)
  - Aortic valve incompetence [Unknown]
  - Pulmonary valve incompetence [Unknown]
  - Ventricular septal defect [Unknown]
  - Patient uncooperative [Unknown]
